FAERS Safety Report 5408256-3 (Version None)
Quarter: 2007Q3

REPORT INFORMATION
  Report Type: 
  Country: None (occurrence: None)
  Receive Date: 20070806
  Receipt Date: 20070806
  Transmission Date: 20080115
  Serious: Yes (Hospitalization)
  Sender: FDA-Public Use
  Company Number: None

PATIENT
  Age: 59 Year
  Sex: Male

DRUGS (2)
  1. FELODIPINE [Suspect]
     Indication: HYPERTENSION
     Dosage: 5MG EVERY DAY PO
     Route: 048
     Dates: start: 20070118, end: 20070417
  2. FUROSEMIDE [Suspect]
     Indication: OEDEMA
     Dosage: 40MG EVERY DAY PO
     Route: 048

REACTIONS (2)
  - HYPOTENSION [None]
  - HYPOXIA [None]
